FAERS Safety Report 7730344-7 (Version None)
Quarter: 2011Q3

REPORT INFORMATION
  Report Type: 
  Country: None (occurrence: None)
  Receive Date: 20110906
  Receipt Date: 20110824
  Transmission Date: 20111222
  Serious: Yes (Hospitalization, Other)
  Sender: FDA-Public Use
  Company Number: US-ELI_LILLY_AND_COMPANY-US200908005336

PATIENT
  Sex: Female

DRUGS (39)
  1. FORTEO [Suspect]
     Indication: OSTEOPOROSIS
     Dosage: 20 UG, DAILY (1/D)
     Dates: end: 20100501
  2. FORTEO [Interacting]
     Dosage: 20 UG, DAILY (1/D)
  3. FORTEO [Interacting]
     Dosage: 20 UG, QD
  4. FORTEO [Interacting]
     Dosage: 20 UG, QD
  5. MUSCLE RELAXANTS [Concomitant]
     Dates: start: 20090201
  6. MINERAL OIL EMULSION [Concomitant]
     Indication: CONSTIPATION
  7. POTASSIUM [Concomitant]
  8. OXYBUTIN [Concomitant]
  9. FORTEO [Interacting]
     Dosage: 20 UG, DAILY (1/D)
     Dates: start: 20100701
  10. VITAMIN D2 [Concomitant]
     Route: 065
  11. FORTEO [Interacting]
     Dosage: 20 UG, DAILY (1/D)
  12. SKELAXIN [Interacting]
     Indication: SURGERY
     Dosage: 400 MG, DAILY (1/D)
     Dates: start: 20090201, end: 20090801
  13. LOSARTAN [Concomitant]
  14. FORTEO [Interacting]
     Dosage: 20 UG, DAILY (1/D)
  15. RANITIDINE [Concomitant]
  16. RANITIDINE [Concomitant]
  17. FORTEO [Interacting]
     Dosage: 20 UG, DAILY (1/D)
     Route: 065
  18. PREDNISONE [Concomitant]
     Dosage: 5 MG, QD
  19. LEVOXYL [Concomitant]
  20. WARFARIN SODIUM [Concomitant]
  21. CELEXA [Concomitant]
  22. FORTEO [Interacting]
     Dosage: 20 UG, DAILY (1/D)
  23. NEURONTIN [Concomitant]
     Indication: ARTHRALGIA
  24. SIMVASTATIN [Concomitant]
  25. MULTI-VITAMIN [Concomitant]
  26. LOTRISONE [Concomitant]
     Indication: RASH
  27. FORTEO [Interacting]
     Dosage: 20 UG, DAILY (1/D)
  28. FORTEO [Interacting]
     Dosage: 20 UG, QD
  29. OXYCONTIN [Concomitant]
     Indication: ARTHRALGIA
  30. VITAMIN D [Concomitant]
     Dosage: 50000 IU, 2/M
  31. CALCIUM WITH VITAMIN D [Concomitant]
  32. FUROSEMIDE [Concomitant]
  33. CHLORIDE [Concomitant]
  34. FORTEO [Interacting]
     Dosage: 20 UG, DAILY (1/D)
  35. FOLIC ACID [Concomitant]
     Dosage: 1 MG, UNK
  36. TIOTROPIUM [Concomitant]
  37. METHOTREXATE [Concomitant]
     Dosage: UNK, WEEKLY (1/W)
  38. METOPROLOL [Concomitant]
  39. GABAPENTIN [Concomitant]

REACTIONS (40)
  - DISCOMFORT [None]
  - SCREAMING [None]
  - ABNORMAL BEHAVIOUR [None]
  - CONSTIPATION [None]
  - PRODUCTIVE COUGH [None]
  - VITAMIN D DECREASED [None]
  - MUSCLE SPASMS [None]
  - MYOCARDIAL INFARCTION [None]
  - MUSCLE TIGHTNESS [None]
  - CONTUSION [None]
  - DYSPHONIA [None]
  - MUSCULAR WEAKNESS [None]
  - STAPHYLOCOCCAL INFECTION [None]
  - PAIN [None]
  - INTERVERTEBRAL DISC PROTRUSION [None]
  - DERMAL CYST [None]
  - GAIT DISTURBANCE [None]
  - ADVERSE DRUG REACTION [None]
  - BLOOD PRESSURE DECREASED [None]
  - INJECTION SITE PAIN [None]
  - DRUG DOSE OMISSION [None]
  - THROMBOSIS [None]
  - SURGERY [None]
  - FALL [None]
  - CONFUSIONAL STATE [None]
  - INFECTED CYST [None]
  - BACK PAIN [None]
  - STOMATITIS [None]
  - NECK PAIN [None]
  - RESPIRATORY RATE DECREASED [None]
  - PAIN IN EXTREMITY [None]
  - DRUG INTERACTION [None]
  - JOINT INJURY [None]
  - LIMB INJURY [None]
  - LYMPH NODE PAIN [None]
  - SECRETION DISCHARGE [None]
  - INJECTION SITE ERYTHEMA [None]
  - HEADACHE [None]
  - DYSKINESIA [None]
  - NASOPHARYNGITIS [None]
